FAERS Safety Report 9732853 (Version 4)
Quarter: 2014Q2

REPORT INFORMATION
  Report Type: Spontaneous
  Country: JP (occurrence: JP)
  Receive Date: 20131205
  Receipt Date: 20140416
  Transmission Date: 20141212
  Serious: Yes (Hospitalization)
  Sender: FDA-Public Use
  Company Number: JP-OTSUKA-JP-2013-15580

PATIENT
  Age: 61 Year
  Sex: Female

DRUGS (4)
  1. PLETAAL [Suspect]
     Indication: PROPHYLAXIS
     Dosage: UNK
     Route: 048
     Dates: start: 201304
  2. MEILAX [Suspect]
     Indication: PRODUCT USED FOR UNKNOWN INDICATION
     Dosage: UNK
     Route: 048
     Dates: start: 201304
  3. TACROLIMUS MONOHYDRATE [Suspect]
     Indication: PRODUCT USED FOR UNKNOWN INDICATION
     Dosage: UNK
     Route: 048
  4. TACROLIMUS MONOHYDRATE [Suspect]
     Dosage: UNK, DOSE REDUCED
     Route: 048

REACTIONS (3)
  - Drug level increased [Recovered/Resolved]
  - Blood glucose increased [Recovered/Resolved]
  - Drug interaction [Recovered/Resolved]
